FAERS Safety Report 5180972-0 (Version None)
Quarter: 2006Q4

REPORT INFORMATION
  Report Type: 
  Country: None (occurrence: None)
  Receive Date: 20061220
  Receipt Date: 20060112
  Transmission Date: 20070319
  Serious: Yes (Hospitalization, Other)
  Sender: FDA-Public Use
  Company Number: US-BAYER-200610315BWH

PATIENT
  Age: 77 Year
  Sex: Male

DRUGS (2)
  1. SORAFENIB [Suspect]
     Indication: RENAL CELL CARCINOMA STAGE UNSPECIFIED
     Dosage: TOTAL DAILY DOSE: 800 MG  UNIT DOSE: 200 MG
     Route: 048
     Dates: start: 20050901, end: 20061101
  2. HYDROCHLOROTHIAZIDE [Concomitant]

REACTIONS (8)
  - BONE DISORDER [None]
  - DIARRHOEA [None]
  - ERYTHEMA [None]
  - FLUSHING [None]
  - HYPERTENSION [None]
  - METASTASES TO BONE [None]
  - MUSCULAR WEAKNESS [None]
  - RENAL CELL CARCINOMA STAGE UNSPECIFIED [None]
